FAERS Safety Report 9878453 (Version 2)
Quarter: 2014Q1

REPORT INFORMATION
  Report Type: Spontaneous
  Country: US (occurrence: US)
  Receive Date: 20140206
  Receipt Date: 20140206
  Transmission Date: 20141002
  Serious: No
  Sender: FDA-Public Use
  Company Number: US-ALLERGAN-1311467US

PATIENT
  Age: 50 Year
  Sex: Male

DRUGS (4)
  1. BOTOX [Suspect]
     Indication: HYPERTONIC BLADDER
     Dosage: UNK, SINGLE
     Route: 030
     Dates: start: 20130822, end: 20130822
  2. BOTOX [Suspect]
     Indication: MIGRAINE
     Dosage: UNK
     Dates: start: 20081114, end: 20081114
  3. LANTUS [Concomitant]
     Indication: DIABETES MELLITUS
  4. ASPARTEN [Concomitant]
     Indication: DIABETES MELLITUS

REACTIONS (20)
  - Bedridden [Recovered/Resolved]
  - Eating disorder symptom [Recovered/Resolved]
  - Pain [Recovered/Resolved]
  - Haematuria [Recovered/Resolved]
  - Abdominal pain upper [Recovered/Resolved]
  - Hyperhidrosis [Recovered/Resolved]
  - Dizziness [Not Recovered/Not Resolved]
  - Seizure like phenomena [Recovered/Resolved]
  - Pallor [Recovered/Resolved]
  - Blood pressure decreased [Recovered/Resolved]
  - Blood glucose increased [Recovered/Resolved]
  - Anticipatory anxiety [Recovered/Resolved]
  - Dehydration [Recovered/Resolved]
  - Blood glucose abnormal [Recovered/Resolved]
  - Stress [Recovered/Resolved]
  - Poor quality sleep [Not Recovered/Not Resolved]
  - Photosensitivity reaction [Recovered/Resolved]
  - Headache [Recovered/Resolved]
  - Injection site pain [Recovered/Resolved]
  - Drug ineffective [Unknown]
